FAERS Safety Report 6440143-4 (Version None)
Quarter: 2009Q4

REPORT INFORMATION
  Report Type: 
  Country: None (occurrence: None)
  Receive Date: 20091113
  Receipt Date: 20090226
  Transmission Date: 20100525
  Serious: Yes (Hospitalization)
  Sender: FDA-Public Use
  Company Number: A0770703A

PATIENT
  Age: 84 Year
  Sex: Female

DRUGS (6)
  1. CARVEDILOL [Suspect]
     Indication: HYPERTENSION
     Route: 048
     Dates: start: 20060101
  2. COREG [Suspect]
     Indication: HYPERTENSION
     Route: 048
     Dates: start: 20060101
  3. COQ10 [Suspect]
  4. AVALIDE [Concomitant]
  5. ASPIRIN [Concomitant]
  6. MEVACOR [Concomitant]

REACTIONS (3)
  - BLOOD PRESSURE INCREASED [None]
  - DIZZINESS [None]
  - FATIGUE [None]
